FAERS Safety Report 5582713-1 (Version None)
Quarter: 2008Q1

REPORT INFORMATION
  Report Type: 
  Country: None (occurrence: None)
  Receive Date: 20080107
  Receipt Date: 20080104
  Transmission Date: 20080703
  Serious: Yes (Life-Threatening, Hospitalization, Other)
  Sender: FDA-Public Use
  Company Number: GB-BRISTOL-MYERS SQUIBB COMPANY-14030803

PATIENT
  Age: 54 Year
  Sex: Male
  Weight: 62 kg

DRUGS (2)
  1. IRBESARTAN [Suspect]
     Route: 048
     Dates: start: 20061011, end: 20071126
  2. BENDROFLUMETHIAZIDE [Concomitant]
     Route: 048
     Dates: start: 20061005, end: 20071126

REACTIONS (1)
  - RHABDOMYOLYSIS [None]
